FAERS Safety Report 6125719-6 (Version None)
Quarter: 2009Q1

REPORT INFORMATION
  Report Type: 
  Country: None (occurrence: None)
  Receive Date: 20090304
  Receipt Date: 20080707
  Transmission Date: 20090719
  Serious: Yes (Other)
  Sender: FDA-Public Use
  Company Number: 277084

PATIENT

DRUGS (2)
  1. NOVOSEVEN [Suspect]
     Indication: DRUG USE FOR UNKNOWN INDICATION
  2. FEIBA [Concomitant]

REACTIONS (1)
  - PULMONARY EMBOLISM [None]
